FAERS Safety Report 9149527 (Version 2)
Quarter: 2013Q1

REPORT INFORMATION
  Report Type: Spontaneous
  Country: US (occurrence: US)
  Receive Date: 20130308
  Receipt Date: 20130318
  Transmission Date: 20140127
  Serious: Yes (Other)
  Sender: FDA-Public Use
  Company Number: US-ASTELLAS-2013US002619

PATIENT
  Sex: Female

DRUGS (2)
  1. PROGRAF [Suspect]
     Indication: STEM CELL TRANSPLANT
     Dosage: UNK
     Route: 042
     Dates: start: 20001124
  2. PROGRAF [Suspect]
     Dosage: 1 MG, BID
     Route: 048
     Dates: start: 20010104

REACTIONS (2)
  - Off label use [Unknown]
  - Graft versus host disease [Recovered/Resolved]
